FAERS Safety Report 5699634-6 (Version None)
Quarter: 2008Q2

REPORT INFORMATION
  Report Type: 
  Country: None (occurrence: None)
  Receive Date: 20080410
  Receipt Date: 20080404
  Transmission Date: 20081010
  Serious: Yes (Other)
  Sender: FDA-Public Use
  Company Number: PHNU2008DE01465

PATIENT
  Sex: Female

DRUGS (1)
  1. VOLTAREN [Suspect]
     Indication: BACK PAIN
     Dates: start: 20080403, end: 20080403

REACTIONS (4)
  - CONFUSIONAL STATE [None]
  - DELUSION [None]
  - DISORIENTATION [None]
  - DIZZINESS [None]
